FAERS Safety Report 11575784 (Version 2)
Quarter: 2015Q4

REPORT INFORMATION
  Report Type: Spontaneous
  Country: US (occurrence: US)
  Receive Date: 20150930
  Receipt Date: 20151005
  Transmission Date: 20160304
  Serious: No
  Sender: FDA-Public Use
  Company Number: US-TEVA-596845USA

PATIENT
  Sex: Female

DRUGS (8)
  1. MAGNESIUM [Concomitant]
     Active Substance: MAGNESIUM
  2. METOPROLOL [Concomitant]
     Active Substance: METOPROLOL
  3. GABAPENTIN. [Concomitant]
     Active Substance: GABAPENTIN
  4. METFORMIN [Concomitant]
     Active Substance: METFORMIN HYDROCHLORIDE
  5. AMITRIPTYLINE [Concomitant]
     Active Substance: AMITRIPTYLINE
  6. COPAXONE [Suspect]
     Active Substance: GLATIRAMER ACETATE
     Indication: MULTIPLE SCLEROSIS
     Dosage: UNKNOWN FORM STRENGTH
  7. VITAMINS [Concomitant]
     Active Substance: VITAMINS
     Dosage: UNKNOWN DOSE STRENGTH
  8. TIZANIDINE. [Concomitant]
     Active Substance: TIZANIDINE

REACTIONS (2)
  - Arthralgia [Recovered/Resolved]
  - Back pain [Recovered/Resolved]
